FAERS Safety Report 13336306 (Version 1)
Quarter: 2017Q1

REPORT INFORMATION
  Report Type: Spontaneous
  Country: CO (occurrence: CO)
  Receive Date: 20170314
  Receipt Date: 20170314
  Transmission Date: 20170428
  Serious: Yes (Hospitalization)
  Sender: FDA-Public Use
  Company Number: CO-ELI_LILLY_AND_COMPANY-CO201605010182

PATIENT
  Age: 30 Year
  Sex: Female

DRUGS (3)
  1. METFORMIN [Concomitant]
     Active Substance: METFORMIN HYDROCHLORIDE
     Indication: TYPE 2 DIABETES MELLITUS
  2. HUMALOG [Suspect]
     Active Substance: INSULIN LISPRO
     Indication: TYPE 2 DIABETES MELLITUS
     Dosage: 16 IU, EACH MORNING
     Route: 058
     Dates: start: 20160520, end: 20161224
  3. HUMALOG [Suspect]
     Active Substance: INSULIN LISPRO
     Dosage: 4 IU, QD
     Route: 058
     Dates: start: 20160520, end: 20161224

REACTIONS (4)
  - Hypothyroidism [Recovered/Resolved]
  - Maternal exposure during pregnancy [Unknown]
  - Abortion threatened [Recovered/Resolved]
  - Exposure during breast feeding [Unknown]

NARRATIVE: CASE EVENT DATE: 20160520
